FAERS Safety Report 9766303 (Version 1)
Quarter: 2013Q4

REPORT INFORMATION
  Report Type: Spontaneous
  Country: US (occurrence: US)
  Receive Date: 20131217
  Receipt Date: 20131217
  Transmission Date: 20140711
  Serious: No
  Sender: FDA-Public Use
  Company Number: US-GLAXOSMITHKLINE-A1025050A

PATIENT
  Age: 83 Year
  Sex: Male

DRUGS (11)
  1. VOTRIENT [Suspect]
     Indication: RENAL CELL CARCINOMA
     Dosage: 4TAB PER DAY
     Route: 048
     Dates: start: 20130407
  2. HYDROCHLOROTHIAZIDE + LOSARTAN [Concomitant]
  3. CLOPIDOGREL [Concomitant]
  4. ATORVASTATIN [Concomitant]
  5. METOPROLOL [Concomitant]
  6. UNSPECIFIED DRUG [Concomitant]
  7. VITAMIN D [Concomitant]
  8. VITAMINS [Concomitant]
  9. FISH OIL [Concomitant]
  10. CENTRUM SILVER [Concomitant]
  11. BABY ASPIRIN [Concomitant]

REACTIONS (3)
  - Rash generalised [Recovered/Resolved]
  - Insomnia [Unknown]
  - Liver function test abnormal [Unknown]
